FAERS Safety Report 11879035 (Version 1)
Quarter: 2015Q4

REPORT INFORMATION
  Report Type: Spontaneous
  Country: IT (occurrence: IT)
  Receive Date: 20151230
  Receipt Date: 20151230
  Transmission Date: 20160305
  Serious: Yes (Other)
  Sender: FDA-Public Use
  Company Number: IT-TEVA-621234ACC

PATIENT
  Age: 47 Year
  Sex: Male
  Weight: 82 kg

DRUGS (6)
  1. FLUOROURACILE TEVA - 500 MG/10 ML SOLUZIONE PER INFUSIONE [Suspect]
     Active Substance: FLUOROURACIL
     Indication: RECTAL ADENOCARCINOMA
     Dosage: 790 MG CYCLICAL
     Route: 040
     Dates: start: 20150402, end: 20151222
  2. TRIATEC HCT - 5MG + 25 MG COMPRESSE [Concomitant]
     Active Substance: HYDROCHLOROTHIAZIDE\RAMIPRIL
     Indication: HYPERTENSION
     Dosage: 1 DF
     Route: 048
  3. LEDERFOLIN - 100 MG POLVERE PER SOLUZIONE PER INFUSIONE [Concomitant]
     Active Substance: LEUCOVORIN CALCIUM
     Indication: RECTAL ADENOCARCINOMA
     Dosage: 395 MG
     Route: 042
  4. FLUOROURACILE TEVA - 500 MG/10 ML SOLUZIONE PER INFUSIONE [Suspect]
     Active Substance: FLUOROURACIL
     Indication: RECTAL ADENOCARCINOMA
     Dosage: 4740 MG CYCLICAL
     Route: 042
     Dates: start: 20150402, end: 20151222
  5. OXALIPLATINO SANDOZ - 5 MG/ML CONCENTRATO PER SOLUZIONE PER INFUSIONE [Suspect]
     Active Substance: OXALIPLATIN
     Indication: RECTAL ADENOCARCINOMA
     Dosage: 160 MG CYCLICAL
     Route: 042
     Dates: start: 20150402, end: 20151222
  6. VECTIBIX [Suspect]
     Active Substance: PANITUMUMAB
     Indication: RECTAL ADENOCARCINOMA
     Dosage: 492 MG CYCLICAL
     Route: 042
     Dates: start: 20150402, end: 20151222

REACTIONS (2)
  - Folliculitis [Recovered/Resolved]
  - Mucosal inflammation [Recovered/Resolved]

NARRATIVE: CASE EVENT DATE: 20150504
